FAERS Safety Report 25713134 (Version 1)
Quarter: 2025Q3

REPORT INFORMATION
  Report Type: Spontaneous
  Country: GB (occurrence: GB)
  Receive Date: 20250822
  Receipt Date: 20250822
  Transmission Date: 20251021
  Serious: Yes (Other)
  Sender: BAXTER
  Company Number: GB-BAXTER-2025BAX017365

PATIENT
  Sex: Female

DRUGS (4)
  1. SODIUM CHLORIDE [Suspect]
     Active Substance: SODIUM CHLORIDE
     Dosage: UNK, EVERY 8 WK
     Route: 042
  2. WATER FOR INJECTION [Suspect]
     Active Substance: WATER
     Dosage: UNK, EVERY 8 WK
     Route: 042
  3. INFLIXIMAB [Suspect]
     Active Substance: INFLIXIMAB
     Indication: Colitis ulcerative
     Dosage: 275 MG, EVERY 8 WK
     Route: 042
  4. SODIUM CHLORIDE [Suspect]
     Active Substance: SODIUM CHLORIDE
     Indication: Catheter management
     Route: 042

REACTIONS (4)
  - Haematochezia [Unknown]
  - Herpes zoster [Unknown]
  - Rash [Unknown]
  - Product dose omission issue [Unknown]
